FAERS Safety Report 10156502 (Version 2)
Quarter: 2014Q2

REPORT INFORMATION
  Report Type: Spontaneous
  Country: US (occurrence: None)
  Receive Date: 20140505
  Receipt Date: 20140623
  Transmission Date: 20141212
  Serious: Yes (Other)
  Sender: FDA-Public Use
  Company Number: 2014-US-004833

PATIENT
  Age: 36 Year
  Sex: Male
  Weight: 133.8 kg

DRUGS (3)
  1. XYREM (SODIUM OXYBATE) ORAL SOLUTION, 500MG/ML [Suspect]
     Indication: NARCOLEPSY
     Route: 048
     Dates: start: 200806
  2. XYREM (SODIUM OXYBATE) ORAL SOLUTION, 500MG/ML [Suspect]
     Indication: CATAPLEXY
     Route: 048
     Dates: start: 200806
  3. NUVIGIL (AMODAFINIL) [Concomitant]

REACTIONS (3)
  - Sleep apnoea syndrome [None]
  - Blood cholesterol increased [None]
  - Weight increased [None]
